FAERS Safety Report 4906886-6 (Version None)
Quarter: 2006Q1

REPORT INFORMATION
  Report Type: 
  Country: None (occurrence: None)
  Receive Date: 20060207
  Receipt Date: 20060117
  Transmission Date: 20060701
  Serious: Yes (Hospitalization)
  Sender: FDA-Public Use
  Company Number: ES200601004109

PATIENT
  Age: 70 Year
  Sex: Female

DRUGS (3)
  1. FORTEO [Suspect]
     Indication: OSTEOPOROSIS
     Dosage: 20 UG, DAILY (1/D), SUBCUTANEOUS
     Route: 058
     Dates: start: 20051124, end: 20051221
  2. INSULIN [Concomitant]
  3. THYROXIN (LEVOTHYROXINE SODIUM) [Concomitant]

REACTIONS (2)
  - FALL [None]
  - PATELLA FRACTURE [None]
